FAERS Safety Report 7681867-0 (Version None)
Quarter: 2011Q3

REPORT INFORMATION
  Report Type: 
  Country: None (occurrence: None)
  Receive Date: 20110813
  Receipt Date: 20110801
  Transmission Date: 20111222
  Serious: Yes (Hospitalization)
  Sender: FDA-Public Use
  Company Number: US-ELI_LILLY_AND_COMPANY-US201007001361

PATIENT
  Sex: Female

DRUGS (12)
  1. LASIX [Concomitant]
  2. METFORMIN HCL [Concomitant]
  3. DUONEB [Concomitant]
  4. FORTEO [Suspect]
     Dosage: 20 UG, QD
     Route: 065
     Dates: end: 20110512
  5. TOPREL [Concomitant]
  6. FORTEO [Suspect]
     Indication: OSTEOPOROSIS
     Dosage: 20 UG, QD
     Route: 065
     Dates: start: 20100510, end: 20100606
  7. FORTEO [Suspect]
     Dosage: 20 UG, QD
     Route: 065
     Dates: start: 20100607, end: 20100627
  8. JANUVIA [Concomitant]
  9. XANAX [Concomitant]
     Dosage: UNK, PRN
  10. FORTEO [Suspect]
     Dosage: 20 UG, QD
     Route: 065
     Dates: start: 20110517
  11. SYMBICORT [Concomitant]
     Dosage: UNK, BID
  12. CRESTOR [Concomitant]

REACTIONS (6)
  - INTESTINAL OBSTRUCTION [None]
  - PAIN IN EXTREMITY [None]
  - BILE DUCT OBSTRUCTION [None]
  - INJECTION SITE PAIN [None]
  - INJECTION SITE HAEMATOMA [None]
  - MUSCLE SPASMS [None]
